FAERS Safety Report 8555130 (Version 3)
Quarter: 2012Q4

REPORT INFORMATION
  Report Type: 
  Country: CA (occurrence: CA)
  Receive Date: 20120510
  Receipt Date: 20121105
  Transmission Date: 20130627
  Serious: Yes (Other)
  Sender: FDA-Public Use
  Company Number: PHHY2011CA93163

PATIENT
  Age: 20 Year
  Sex: Female

DRUGS (1)
  1. GILENYA [Suspect]
     Indication: RELAPSING-REMITTING MULTIPLE SCLEROSIS
     Dosage: 0.5 mg, QD
     Route: 048
     Dates: start: 20111004, end: 20120906

REACTIONS (9)
  - Colour blindness [Recovering/Resolving]
  - Vision blurred [Recovering/Resolving]
  - Chest pain [Unknown]
  - Nausea [Not Recovered/Not Resolved]
  - Nasopharyngitis [Recovered/Resolved]
  - Headache [Unknown]
  - Back pain [Unknown]
  - Fatigue [Unknown]
  - Multiple sclerosis relapse [Unknown]
